FAERS Safety Report 24361501 (Version 2)
Quarter: 2024Q4

REPORT INFORMATION
  Report Type: Report from Study
  Country: KR (occurrence: KR)
  Receive Date: 20240925
  Receipt Date: 20241111
  Transmission Date: 20250115
  Serious: No
  Sender: ROCHE
  Company Number: KR-ROCHE-10000021444

PATIENT
  Age: 65 Year
  Sex: Male

DRUGS (6)
  1. KADCYLA [Suspect]
     Active Substance: ADO-TRASTUZUMAB EMTANSINE
     Indication: Bile duct cancer
     Dosage: DOSING REGIMEN:?3.6MG/KG
     Route: 042
     Dates: start: 20230502, end: 20230502
  2. KADCYLA [Suspect]
     Active Substance: ADO-TRASTUZUMAB EMTANSINE
     Dosage: DOSE 3.6MG/KG
     Route: 042
     Dates: start: 20230523, end: 20230523
  3. KADCYLA [Suspect]
     Active Substance: ADO-TRASTUZUMAB EMTANSINE
     Dosage: DOSE 3.6MG/KG
     Route: 042
     Dates: start: 20230613, end: 20230613
  4. KADCYLA [Suspect]
     Active Substance: ADO-TRASTUZUMAB EMTANSINE
     Dosage: DOSE 3.6MG/KG
     Route: 042
     Dates: start: 20230704, end: 20230704
  5. Mucopect tab [30mg] [Concomitant]
     Route: 048
     Dates: start: 20230405, end: 20230705
  6. Levotuss tab [60mg] [Concomitant]
     Route: 048
     Dates: start: 20230405, end: 20230705

REACTIONS (1)
  - Chills [Recovered/Resolved]

NARRATIVE: CASE EVENT DATE: 20230502
